FAERS Safety Report 21459306 (Version 1)
Quarter: 2022Q4

REPORT INFORMATION
  Report Type: Spontaneous
  Country: US (occurrence: None)
  Receive Date: 20221013
  Receipt Date: 20221013
  Transmission Date: 20230113
  Serious: No
  Sender: FDA-Public Use
  Company Number: None

PATIENT
  Age: 84 Year
  Sex: Male

DRUGS (6)
  1. POLIVY [Suspect]
     Active Substance: POLATUZUMAB VEDOTIN-PIIQ
     Indication: Diffuse large B-cell lymphoma
     Dosage: OTHER FREQUENCY : EVERY21DAYS;?
     Route: 042
  2. AMLODIPINE [Concomitant]
  3. ATORVASTATIN [Concomitant]
  4. GLIPIZIDE [Concomitant]
  5. MULTIVITAMIN [Concomitant]
  6. VALSARTAN [Concomitant]

REACTIONS (1)
  - Hospice care [None]
